FAERS Safety Report 8956000 (Version 2)
Quarter: 2012Q4

REPORT INFORMATION
  Report Type: 
  Country: KR (occurrence: KR)
  Receive Date: 20121210
  Receipt Date: 20121220
  Transmission Date: 20130627
  Serious: Yes (Hospitalization)
  Sender: FDA-Public Use
  Company Number: KR-BAXTER-2012BAX026182

PATIENT
  Age: 51 Year
  Sex: Female
  Weight: 58 kg

DRUGS (4)
  1. DIANEAL-N PD-2 1.5% [Suspect]
     Indication: CAPD
     Route: 033
     Dates: start: 20090605
  2. DIANEAL-N PD-2 1.5% [Suspect]
     Indication: END STAGE RENAL DISEASE (ESRD)
  3. EXTRANEAL [Suspect]
     Indication: CAPD
     Route: 033
     Dates: start: 20090605
  4. EXTRANEAL [Suspect]
     Indication: END STAGE RENAL DISEASE (ESRD)

REACTIONS (3)
  - Oedema [Recovered/Resolved]
  - Treatment noncompliance [None]
  - Device dislocation [None]
